FAERS Safety Report 8399496-2 (Version None)
Quarter: 2012Q2

REPORT INFORMATION
  Report Type: 
  Country: None (occurrence: None)
  Receive Date: 20120525
  Receipt Date: 20110427
  Transmission Date: 20120825
  Serious: Yes (Other)
  Sender: FDA-Public Use
  Company Number: ADE12-038

PATIENT

DRUGS (2)
  1. HEPARIN SODIUM INJECTION [Suspect]
     Dosage: INTRAVENOUS
     Route: 042
  2. HEPARIN SODIUM INJECTION [Suspect]

REACTIONS (2)
  - COAGULOPATHY [None]
  - CARDIAC PROCEDURE COMPLICATION [None]
